FAERS Safety Report 11897846 (Version 1)
Quarter: 2016Q1

REPORT INFORMATION
  Report Type: Spontaneous
  Country: US (occurrence: None)
  Receive Date: 20160107
  Receipt Date: 20160107
  Transmission Date: 20160526
  Serious: Yes (Other)
  Sender: FDA-Public Use
  Company Number: None

PATIENT
  Age: 64 Year
  Sex: Female
  Weight: 74.39 kg

DRUGS (2)
  1. SENNA [Suspect]
     Active Substance: SENNA LEAF\SENNOSIDES\SENNOSIDES A AND B
     Indication: CONSTIPATION PROPHYLAXIS
     Route: 048
     Dates: start: 20151121, end: 20151127
  2. IRON SUPPLEMENTS [Concomitant]
     Active Substance: IRON

REACTIONS (5)
  - Pain [None]
  - Hiccups [None]
  - Sensation of foreign body [None]
  - Oesophageal food impaction [None]
  - Post procedural complication [None]

NARRATIVE: CASE EVENT DATE: 20151127
